FAERS Safety Report 4458075-X (Version None)
Quarter: 2004Q3

REPORT INFORMATION
  Report Type: 
  Country: None (occurrence: None)
  Receive Date: 20040922
  Receipt Date: 20040908
  Transmission Date: 20050211
  Serious: Yes (Other)
  Sender: FDA-Public Use
  Company Number: 2004-00805FE

PATIENT
  Age: 36 Year
  Sex: Male

DRUGS (3)
  1. PENTASA [Suspect]
     Indication: COLITIS ULCERATIVE
     Dosage: 2250 MG ORALLY
     Route: 048
     Dates: start: 20040702, end: 20040731
  2. ECABET MONOSODIUM [Concomitant]
  3. FERROUS CITRATE [Concomitant]

REACTIONS (2)
  - EOSINOPHIL COUNT INCREASED [None]
  - WHITE BLOOD CELL COUNT DECREASED [None]
